FAERS Safety Report 7416559-6 (Version None)
Quarter: 2011Q2

REPORT INFORMATION
  Report Type: 
  Country: None (occurrence: None)
  Receive Date: 20110415
  Receipt Date: 20110411
  Transmission Date: 20111010
  Serious: Yes (Other)
  Sender: FDA-Public Use
  Company Number: GB-AMGEN-GBRSP2011002623

PATIENT
  Sex: Female

DRUGS (6)
  1. PREDNISOLONE [Concomitant]
     Dosage: 15 MG, UNK
     Route: 048
     Dates: start: 20100928
  2. ENBREL [Suspect]
     Indication: PSORIATIC ARTHROPATHY
     Dosage: 50 MG, UNK
     Route: 058
     Dates: start: 20101111, end: 20101122
  3. GABAPENTIN [Concomitant]
     Dosage: 300 MG, UNK
     Route: 048
     Dates: start: 20100916
  4. PARACETAMOL [Concomitant]
     Dosage: UNK
     Route: 048
  5. LEFLUNOMIDE [Concomitant]
     Dosage: 10 MG, UNK
     Route: 048
  6. TRAMADOL [Concomitant]
     Dosage: 100 MG, UNK
     Route: 048
     Dates: start: 20090302

REACTIONS (2)
  - LIP SWELLING [None]
  - RASH PRURITIC [None]
